FAERS Safety Report 4367106-7 (Version None)
Quarter: 2004Q2

REPORT INFORMATION
  Report Type: 
  Country: None (occurrence: None)
  Receive Date: 20040528
  Receipt Date: 20040205
  Transmission Date: 20050107
  Serious: Yes (Other)
  Sender: FDA-Public Use
  Company Number: US-GLAXOSMITHKLINE-A0496770A

PATIENT
  Age: 35 Year
  Sex: Female
  Weight: 51.4 kg

DRUGS (1)
  1. VALTREX [Suspect]
     Dosage: 500MG TWICE PER DAY
     Route: 048
     Dates: start: 20040101, end: 20040107

REACTIONS (2)
  - ANXIETY [None]
  - PSYCHOTIC DISORDER [None]
